FAERS Safety Report 25931713 (Version 1)
Quarter: 2025Q4

REPORT INFORMATION
  Report Type: Spontaneous
  Country: US (occurrence: None)
  Receive Date: 20251016
  Receipt Date: 20251016
  Transmission Date: 20260118
  Serious: Yes (Other)
  Sender: FDA-CTU
  Company Number: None

PATIENT
  Age: 82 Year
  Sex: Female
  Weight: 102.1 kg

DRUGS (1)
  1. GAMUNEX-C [Suspect]
     Active Substance: HUMAN IMMUNOGLOBULIN G
     Dates: start: 20251002, end: 20251002

REACTIONS (7)
  - Infusion related reaction [None]
  - Rash papular [None]
  - Pruritus [None]
  - Rash [None]
  - Urticaria [None]
  - Rash [None]
  - Rash [None]

NARRATIVE: CASE EVENT DATE: 20251002
